FAERS Safety Report 20675361 (Version 3)
Quarter: 2022Q2

REPORT INFORMATION
  Report Type: Spontaneous
  Country: JP (occurrence: JP)
  Receive Date: 20220405
  Receipt Date: 20220527
  Transmission Date: 20220721
  Serious: Yes (Hospitalization, Other)
  Sender: FDA-Public Use
  Company Number: JP-BAYER-2022A047921

PATIENT
  Sex: Male

DRUGS (4)
  1. EYLEA [Suspect]
     Active Substance: AFLIBERCEPT
     Indication: Age-related macular degeneration
     Dosage: 2MG(0.05ML), ONCE, LEFT EYE; FORMULATION: SOLUTION FOR INJECTION
     Route: 031
     Dates: start: 20210824, end: 20210824
  2. EYLEA [Suspect]
     Active Substance: AFLIBERCEPT
     Dosage: 2MG(0.05ML), ONCE, LEFT EYE;  FORMULATION: SOLUTION FOR INJECTION
     Route: 031
     Dates: start: 20211026, end: 20211026
  3. EYLEA [Suspect]
     Active Substance: AFLIBERCEPT
     Dosage: 2MG(0.05ML), ONCE, LEFT EYE;  FORMULATION: SOLUTION FOR INJECTION
     Route: 031
     Dates: start: 20220208, end: 20220208
  4. EYLEA [Suspect]
     Active Substance: AFLIBERCEPT
     Dosage: 2MG(0.05ML), ONCE, LEFT EYE;  FORMULATION: SOLUTION FOR INJECTION
     Route: 031
     Dates: start: 20220329, end: 20220329

REACTIONS (1)
  - Cerebral haemorrhage [Unknown]

NARRATIVE: CASE EVENT DATE: 20220401
